FAERS Safety Report 9502630 (Version 1)
Quarter: 2013Q3

REPORT INFORMATION
  Report Type: Spontaneous
  Country: US (occurrence: US)
  Receive Date: 20130906
  Receipt Date: 20130906
  Transmission Date: 20140515
  Serious: No
  Sender: FDA-Public Use
  Company Number: US-009507513-1309USA002456

PATIENT
  Age: 72 Year
  Sex: Female

DRUGS (3)
  1. NASONEX [Suspect]
     Indication: NASAL INFLAMMATION
     Dosage: UNKNOWN
     Route: 045
     Dates: start: 20130828
  2. NEXIUM [Concomitant]
     Dosage: UNKNOWN
  3. FOSAMAX [Concomitant]
     Dosage: UNKNOWN

REACTIONS (2)
  - Dry mouth [Unknown]
  - Somnolence [Unknown]
